FAERS Safety Report 8384846-3 (Version None)
Quarter: 2012Q2

REPORT INFORMATION
  Report Type: 
  Country: None (occurrence: None)
  Receive Date: 20120524
  Receipt Date: 20120516
  Transmission Date: 20120825
  Serious: Yes (Hospitalization, Other)
  Sender: FDA-Public Use
  Company Number: US-MILLENNIUM PHARMACEUTICALS, INC.-2011-02226

PATIENT
  Sex: Male
  Weight: 58.957 kg

DRUGS (9)
  1. DEXAMETHASONE [Suspect]
     Indication: MULTIPLE MYELOMA
     Dosage: 40 MG, CYCLIC
     Dates: start: 20110110, end: 20110516
  2. HYDROCORTISONE ACETATE [Concomitant]
     Indication: HAEMORRHOIDS
     Dosage: 25 MG, PRN
     Route: 054
     Dates: start: 20110413
  3. WITCH HAZEL                        /01376402/ [Concomitant]
     Indication: HAEMORRHOIDS
     Dosage: UNK
     Route: 061
     Dates: start: 20110413
  4. BRIMONIDINE TARTRATE [Concomitant]
     Indication: GLAUCOMA
     Dosage: 1 GTT, BID
     Route: 047
     Dates: start: 20110322
  5. CYANOCOBALAMIN [Concomitant]
     Indication: PRODUCT USED FOR UNKNOWN INDICATION
     Dosage: 1000 UG, MONTHLY
     Route: 030
     Dates: start: 20110106
  6. LATANOPROST [Concomitant]
     Indication: GLAUCOMA
     Dosage: 1 GTT, QD
     Route: 047
     Dates: start: 20101202
  7. VELCADE [Suspect]
     Indication: MULTIPLE MYELOMA
     Dosage: 1.6 MG/M2, CYCLIC
     Route: 040
     Dates: start: 20110110, end: 20110516
  8. DEXTROSE W/PSYLLIUM [Concomitant]
     Indication: DIARRHOEA
     Dosage: UNK
     Dates: start: 20110411
  9. HYDROCORTISONE W/PRAMOXINE [Concomitant]
     Indication: HAEMORRHOIDS
     Dosage: 1 UNK, UNK
     Route: 054
     Dates: start: 20110318

REACTIONS (5)
  - MULTIPLE MYELOMA [None]
  - BACK PAIN [None]
  - OSTEOMYELITIS [None]
  - BLOOD CREATININE INCREASED [None]
  - PSOAS ABSCESS [None]
